FAERS Safety Report 6371763-3 (Version None)
Quarter: 2009Q3

REPORT INFORMATION
  Report Type: 
  Country: None (occurrence: None)
  Receive Date: 20090923
  Receipt Date: 20090916
  Transmission Date: 20100115
  Serious: Yes (Hospitalization)
  Sender: FDA-Public Use
  Company Number: US-NOVOPROD-291746

PATIENT
  Age: 78 Year
  Sex: Female
  Weight: 82.993 kg

DRUGS (1)
  1. NOVOLIN 70/30 [Suspect]
     Indication: TYPE 2 DIABETES MELLITUS
     Route: 058

REACTIONS (6)
  - ANAEMIA [None]
  - BLOOD GLUCOSE INCREASED [None]
  - INFLUENZA [None]
  - INJECTION SITE IRRITATION [None]
  - RENAL FAILURE [None]
  - WEIGHT DECREASED [None]
